FAERS Safety Report 25558515 (Version 2)
Quarter: 2025Q4

REPORT INFORMATION
  Report Type: Spontaneous
  Country: US (occurrence: US)
  Receive Date: 20250715
  Receipt Date: 20251007
  Transmission Date: 20260117
  Serious: No
  Sender: INTRABIO
  Company Number: US-IBO-202500131

PATIENT
  Age: 11 Year
  Sex: Male
  Weight: 49 kg

DRUGS (1)
  1. AQNEURSA [Suspect]
     Active Substance: LEVACETYLLEUCINE
     Indication: Niemann-Pick disease
     Dosage: AQNUERSA 1 G SACHET?TAKE 2 PACKETS IN THE MORNING, 1 PACKET IN THE AFTERNOON AND 1 PACKET IN THE EVE
     Route: 065
     Dates: start: 20241023, end: 20250519

REACTIONS (4)
  - Memory impairment [Not Recovered/Not Resolved]
  - Drug ineffective [Unknown]
  - Treatment noncompliance [Unknown]
  - Mood altered [Not Recovered/Not Resolved]
